FAERS Safety Report 8494512-1 (Version None)
Quarter: 2012Q3

REPORT INFORMATION
  Report Type: 
  Country: None (occurrence: None)
  Receive Date: 20120709
  Receipt Date: 20111205
  Transmission Date: 20120928
  Serious: No
  Sender: FDA-Public Use
  Company Number: US-COVIDIEN/TYCO HEALTHCARE/MALLINCKRODT-T201102753

PATIENT
  Sex: Male

DRUGS (7)
  1. LIPITOR [Concomitant]
     Indication: DYSLIPIDAEMIA
     Dosage: 20 MG, QHS
     Route: 048
  2. PLAVIX [Concomitant]
     Indication: DYSLIPIDAEMIA
     Dosage: 75 MG, QD
     Route: 048
  3. OXYCODONE/ACETAMINOPHEN [Suspect]
     Indication: PAIN
     Dosage: 7.5/325 MG, TID
     Route: 048
     Dates: start: 20111105, end: 20111116
  4. ENALAPRIL MALEATE [Concomitant]
     Indication: HYPERTENSION
     Dosage: 10 MG, BID
     Route: 048
  5. EFFEXOR [Concomitant]
     Indication: DEPRESSION
     Dosage: 75 MG, 3 CAPS QD
     Route: 048
  6. METOPROLOL TARTRATE [Concomitant]
     Indication: HYPERTENSION
     Dosage: 25 MG, BID
     Route: 048
  7. OXYCODONE/APAP                     /01601701/ [Concomitant]
     Dosage: 7.5/325
     Route: 048

REACTIONS (3)
  - POLLAKIURIA [None]
  - COUGH [None]
  - DRUG INEFFECTIVE [None]
